FAERS Safety Report 4955086-2 (Version None)
Quarter: 2006Q1

REPORT INFORMATION
  Report Type: 
  Country: None (occurrence: None)
  Receive Date: 20060322
  Receipt Date: 20060313
  Transmission Date: 20060701
  Serious: Yes (Disabling)
  Sender: FDA-Public Use
  Company Number: US200603003040

PATIENT
  Age: 35 Year
  Sex: Male

DRUGS (1)
  1. XIGRIS [Suspect]
     Indication: SEPSIS
     Dosage: INTRAVENOUS
     Route: 042
     Dates: start: 20040101

REACTIONS (3)
  - ARM AMPUTATION [None]
  - CARDIOVASCULAR DISORDER [None]
  - LEG AMPUTATION [None]
